FAERS Safety Report 9345663 (Version 2)
Quarter: 2013Q3

REPORT INFORMATION
  Report Type: Report from Study
  Country: CA (occurrence: CA)
  Receive Date: 20130613
  Receipt Date: 20130923
  Transmission Date: 20140515
  Serious: Yes (Other)
  Sender: FDA-Public Use
  Company Number: PHHY2013CA059328

PATIENT
  Age: 54 Year
  Sex: Male
  Weight: 71.66 kg

DRUGS (1)
  1. SANDOSTATIN LAR [Suspect]
     Indication: METASTATIC CARCINOID TUMOUR
     Dosage: 30 MG, EVERY 4 WEEKS
     Route: 030
     Dates: start: 20130530

REACTIONS (2)
  - Nephrolithiasis [Unknown]
  - Weight increased [Unknown]
